FAERS Safety Report 17815410 (Version 1)
Quarter: 2020Q2

REPORT INFORMATION
  Report Type: Report from Study
  Country: JP (occurrence: JP)
  Receive Date: 20200522
  Receipt Date: 20200522
  Transmission Date: 20200714
  Serious: Yes (Other)
  Sender: FDA-Public Use
  Company Number: JP-SUN PHARMACEUTICAL INDUSTRIES LTD-2020RR-248033

PATIENT
  Age: 77 Year
  Sex: Female

DRUGS (3)
  1. CALCIUM FOLINAT [Suspect]
     Active Substance: LEUCOVORIN CALCIUM
     Indication: PSEUDOMYXOMA PERITONEI
     Dosage: 200 MILLIGRAM/SQ. METER, MFOLFOX6
     Route: 065
  2. 5-FLUOROURACIL [Suspect]
     Active Substance: FLUOROURACIL
     Indication: PSEUDOMYXOMA PERITONEI
     Dosage: 400 MG/M2-BOLUS WITH A 46-H INFUSION OF 2400 MG/M2
     Route: 065
  3. OXALIPLATIN. [Suspect]
     Active Substance: OXALIPLATIN
     Indication: PSEUDOMYXOMA PERITONEI
     Dosage: 85 MILLIGRAM/SQ. METER, MFOLFOX6
     Route: 065

REACTIONS (2)
  - Disease progression [Unknown]
  - Therapeutic product effect incomplete [Unknown]
